FAERS Safety Report 25268292 (Version 1)
Quarter: 2025Q2

REPORT INFORMATION
  Report Type: Spontaneous
  Country: US (occurrence: None)
  Receive Date: 20250502
  Receipt Date: 20250502
  Transmission Date: 20250716
  Serious: Yes (Death)
  Sender: FDA-CTU
  Company Number: None

PATIENT
  Age: 73 Year
  Sex: Female

DRUGS (1)
  1. ERBITUX [Suspect]
     Active Substance: CETUXIMAB
     Indication: Colon cancer
     Dosage: 820MG EVERY 2 WEEKS INTRAVENOUS DRIP
     Route: 041
     Dates: start: 20250122, end: 20250226

REACTIONS (1)
  - Death [None]

NARRATIVE: CASE EVENT DATE: 20250304
